FAERS Safety Report 8074168-2 (Version None)
Quarter: 2012Q1

REPORT INFORMATION
  Report Type: 
  Country: None (occurrence: None)
  Receive Date: 20120126
  Receipt Date: 20120119
  Transmission Date: 20120608
  Serious: Yes (Other)
  Sender: FDA-Public Use
  Company Number: US-VERTEX PHARMACEUTICALS INC.-AE-2011-004144

PATIENT
  Sex: Male
  Weight: 81.72 kg

DRUGS (3)
  1. PEGASYS [Concomitant]
     Indication: HEPATITIS C
     Route: 058
     Dates: start: 20110904, end: 20111225
  2. INCIVEK [Suspect]
     Indication: HEPATITIS C
     Route: 048
     Dates: start: 20110904, end: 20111127
  3. RIBAVIRIN [Concomitant]
     Indication: HEPATITIS C
     Route: 048
     Dates: start: 20110904, end: 20111225

REACTIONS (7)
  - VISION BLURRED [None]
  - MEMORY IMPAIRMENT [None]
  - DEPRESSION [None]
  - FATIGUE [None]
  - ARTHRALGIA [None]
  - IMPAIRED REASONING [None]
  - PAIN [None]
